FAERS Safety Report 18497279 (Version 1)
Quarter: 2020Q4

REPORT INFORMATION
  Report Type: Spontaneous
  Country: AU (occurrence: AU)
  Receive Date: 20201112
  Receipt Date: 20201112
  Transmission Date: 20210114
  Serious: Yes (Hospitalization)
  Sender: FDA-Public Use
  Company Number: AU-JNJFOC-20201112072

PATIENT
  Age: 40 Year
  Sex: Female

DRUGS (6)
  1. THIOPENTONE                        /00053401/ [Suspect]
     Active Substance: THIOPENTAL
     Indication: PROCEDURAL PAIN
     Route: 065
  2. MORPHINE [Suspect]
     Active Substance: MORPHINE
     Indication: PROCEDURAL PAIN
     Route: 042
  3. PARACETAMOL [Suspect]
     Active Substance: ACETAMINOPHEN
     Indication: PROCEDURAL PAIN
     Dosage: TOTAL DOSE: 9G FOR THREE DAYS (ON DAY 6: 3 G, ON DAY 7: 4G, ON DAY 8: 2G)
     Route: 048
  4. FENTANYL CITRATE. [Suspect]
     Active Substance: FENTANYL CITRATE
     Indication: PROCEDURAL PAIN
     Route: 065
  5. ATRACURIUM [Suspect]
     Active Substance: ATRACURIUM
     Indication: PROCEDURAL PAIN
     Route: 065
  6. ISOFLURANE. [Suspect]
     Active Substance: ISOFLURANE
     Indication: PROCEDURAL PAIN
     Route: 065

REACTIONS (2)
  - Drug level increased [Recovering/Resolving]
  - Acute hepatic failure [Recovering/Resolving]
